FAERS Safety Report 16512497 (Version 1)
Quarter: 2019Q3

REPORT INFORMATION
  Report Type: Spontaneous
  Country: GR (occurrence: GR)
  Receive Date: 20190702
  Receipt Date: 20190702
  Transmission Date: 20191004
  Serious: Yes (Other)
  Sender: FDA-Public Use
  Company Number: GR-TEVA-2019-GR-1071399

PATIENT
  Age: 8 Year
  Sex: Male

DRUGS (3)
  1. CARBOPLATIN. [Suspect]
     Active Substance: CARBOPLATIN
     Indication: BRAIN NEOPLASM
     Route: 042
     Dates: start: 20190520, end: 20190520
  2. CARBOPLATIN. [Suspect]
     Active Substance: CARBOPLATIN
     Indication: IMMUNE TOLERANCE INDUCTION
  3. CARBOPLATIN. [Suspect]
     Active Substance: CARBOPLATIN
     Indication: OPTIC GLIOMA
     Route: 042
     Dates: start: 20190604, end: 20190604

REACTIONS (3)
  - Erythema [Recovered/Resolved]
  - Cough [Recovered/Resolved]
  - Lip oedema [Recovered/Resolved]

NARRATIVE: CASE EVENT DATE: 20190520
